FAERS Safety Report 17639593 (Version 9)
Quarter: 2022Q1

REPORT INFORMATION
  Report Type: Report from Study
  Country: US (occurrence: US)
  Receive Date: 20200407
  Receipt Date: 20220118
  Transmission Date: 20220423
  Serious: Yes (Hospitalization, Other)
  Sender: FDA-Public Use
  Company Number: US-SHIRE-US202001041

PATIENT
  Sex: Female

DRUGS (2)
  1. HUMAN IMMUNOGLOBULIN G\HYALURONIDASE RECOMBINANT HUMAN [Suspect]
     Active Substance: HUMAN IMMUNOGLOBULIN G\HYALURONIDASE RECOMBINANT HUMAN
     Indication: Primary immunodeficiency syndrome
     Dosage: UNK
     Route: 065
  2. CUVITRU [Suspect]
     Active Substance: HUMAN IMMUNOGLOBULIN G
     Indication: Primary immunodeficiency syndrome
     Dosage: UNK
     Route: 065

REACTIONS (20)
  - Croup infectious [Unknown]
  - Pneumonia [Unknown]
  - Blood pressure increased [Unknown]
  - Renal impairment [Unknown]
  - Bronchitis [Unknown]
  - Immunoglobulins abnormal [Unknown]
  - Illness [Unknown]
  - Infusion site swelling [Unknown]
  - Immunoglobulins decreased [Unknown]
  - Poor venous access [Unknown]
  - Infection [Unknown]
  - Dyspnoea [Unknown]
  - Upper respiratory tract infection [Unknown]
  - Fall [Unknown]
  - Ankle fracture [Unknown]
  - White blood cell count increased [Unknown]
  - COVID-19 [Unknown]
  - Arthralgia [Unknown]
  - Therapy interrupted [Not Recovered/Not Resolved]
  - Drug ineffective [Unknown]
